FAERS Safety Report 4955886-9 (Version None)
Quarter: 2006Q1

REPORT INFORMATION
  Report Type: 
  Country: None (occurrence: None)
  Receive Date: 20060328
  Receipt Date: 20060214
  Transmission Date: 20060701
  Serious: Yes (Hospitalization)
  Sender: FDA-Public Use
  Company Number: US-GILEAD-2006-0009351

PATIENT
  Age: 28 Year
  Sex: Female

DRUGS (3)
  1. TENOFOVIR DISOPROXIL FUMARATE GEL [Suspect]
     Indication: ANTIVIRAL PROPHYLAXIS
     Route: 067
     Dates: start: 20021008, end: 20021021
  2. DEPO-PROVERA [Concomitant]
  3. ALBUTEROL [Concomitant]

REACTIONS (5)
  - ABDOMINAL PAIN LOWER [None]
  - CERVICITIS [None]
  - PELVIC INFLAMMATORY DISEASE [None]
  - UTERINE POLYP [None]
  - VAGINAL DISCHARGE [None]
